FAERS Safety Report 25717538 (Version 1)
Quarter: 2025Q3

REPORT INFORMATION
  Report Type: Spontaneous
  Country: US (occurrence: US)
  Receive Date: 20250822
  Receipt Date: 20250822
  Transmission Date: 20251020
  Serious: Yes (Death, Hospitalization, Other)
  Sender: AMGEN
  Company Number: US-AMGEN-USASP2025162678

PATIENT

DRUGS (1)
  1. PREDNISONE [Suspect]
     Active Substance: PREDNISONE
     Indication: Immunosuppressant drug therapy
     Dosage: UNK, QD (MILLIGRAM)
     Route: 065

REACTIONS (9)
  - Death [Fatal]
  - Infection [Unknown]
  - Heart transplant rejection [Unknown]
  - Neutropenia [Recovered/Resolved]
  - Non-Hodgkin^s lymphoma stage III [Recovered/Resolved]
  - Myelosuppression [Unknown]
  - Lymphopenia [Unknown]
  - Coronary artery disease [Unknown]
  - Anaemia [Recovered/Resolved]
